FAERS Safety Report 4365474-3 (Version None)
Quarter: 2004Q2

REPORT INFORMATION
  Report Type: 
  Country: None (occurrence: None)
  Receive Date: 20040526
  Receipt Date: 20040518
  Transmission Date: 20050107
  Serious: Yes (Hospitalization, Other)
  Sender: FDA-Public Use
  Company Number: US-BRISTOL-MYERS SQUIBB COMPANY-12590667

PATIENT
  Age: 69 Year
  Sex: Male
  Weight: 98 kg

DRUGS (6)
  1. PRAVACHOL [Suspect]
     Indication: BLOOD CHOLESTEROL INCREASED
     Route: 048
     Dates: start: 19910101, end: 20040501
  2. PLAVIX [Concomitant]
  3. DIOVAN [Concomitant]
  4. ASPIRIN [Concomitant]
  5. NEXIUM [Concomitant]
  6. RESTORIL [Concomitant]

REACTIONS (4)
  - BLOOD CREATINE PHOSPHOKINASE INCREASED [None]
  - DEHYDRATION [None]
  - HYPOTENSION [None]
  - RHABDOMYOLYSIS [None]
